FAERS Safety Report 5614414-5 (Version None)
Quarter: 2008Q1

REPORT INFORMATION
  Report Type: 
  Country: None (occurrence: None)
  Receive Date: 20080130
  Receipt Date: 20080115
  Transmission Date: 20080703
  Serious: Yes (Hospitalization)
  Sender: FDA-Public Use
  Company Number: 100#08#2008-00294

PATIENT
  Age: 74 Year
  Sex: Female

DRUGS (5)
  1. CILOSTAZOL [Suspect]
     Indication: THROMBOSIS PROPHYLAXIS
     Dosage: 200 MG
  2. ACETYLSALICYLIC ACID SRT [Concomitant]
  3. TICLOPIDINE HYDROCHLORIDE [Concomitant]
  4. ISOSORBIDE DINITRATE [Concomitant]
  5. CANDESARTAN CILEXETIL (CANDESARTAN CILEXETIL) [Concomitant]

REACTIONS (3)
  - CARDIAC MURMUR [None]
  - CARDIAC VENTRICULAR DISORDER [None]
  - HEART RATE INCREASED [None]
